FAERS Safety Report 6458793-8 (Version None)
Quarter: 2009Q4

REPORT INFORMATION
  Report Type: 
  Country: None (occurrence: None)
  Receive Date: 20091127
  Receipt Date: 20091119
  Transmission Date: 20100525
  Serious: Yes (Other)
  Sender: FDA-Public Use
  Company Number: US-ROCHE-670213

PATIENT
  Sex: Male

DRUGS (1)
  1. TAMIFLU [Suspect]
     Indication: PROPHYLAXIS
     Dosage: FREQUENCY: DAILY
     Route: 048
     Dates: start: 20091016, end: 20091018

REACTIONS (2)
  - DYSSTASIA [None]
  - MUSCULAR WEAKNESS [None]
